FAERS Safety Report 8790902 (Version 1)
Quarter: 2012Q4

REPORT INFORMATION
  Report Type: Spontaneous
  Country: FR (occurrence: None)
  Receive Date: 20120910
  Receipt Date: 20120910
  Transmission Date: 20130627
  Serious: Yes (Hospitalization)
  Sender: FDA-Public Use
  Company Number: FR-008840

PATIENT
  Age: 53 Year
  Weight: 60 kg

DRUGS (1)
  1. PICOPREP [Suspect]
     Indication: BOWEL PREPARATION
     Dosage: 2 DF, 2 SACHETS ORAL
     Route: 048
     Dates: start: 20120527, end: 20120527

REACTIONS (2)
  - Syncope [None]
  - Diarrhoea [None]
